FAERS Safety Report 13039402 (Version 1)
Quarter: 2016Q4

REPORT INFORMATION
  Report Type: Report from Study
  Country: DE (occurrence: DE)
  Receive Date: 20161219
  Receipt Date: 20161219
  Transmission Date: 20170207
  Serious: Yes (Hospitalization)
  Sender: FDA-Public Use
  Company Number: DE-TEVA-719874GER

PATIENT
  Age: 60 Year
  Sex: Female

DRUGS (5)
  1. GLYCYRRHIZA [Suspect]
     Active Substance: LICORICE
     Route: 065
  2. CINNAMON. [Suspect]
     Active Substance: CINNAMON
     Route: 065
  3. CARDAMOM [Suspect]
     Active Substance: CARDAMOM
     Route: 065
  4. GINGER. [Suspect]
     Active Substance: GINGER
     Route: 065
  5. METOPROLOL. [Suspect]
     Active Substance: METOPROLOL
     Indication: HYPERTENSION
     Dosage: 50 MILLIGRAM DAILY;
     Route: 065

REACTIONS (1)
  - Drug-induced liver injury [Recovering/Resolving]
